APPROVED DRUG PRODUCT: 8-MOP
Active Ingredient: METHOXSALEN
Strength: 10MG
Dosage Form/Route: CAPSULE;ORAL
Application: N009048 | Product #001
Applicant: VALEANT PHARMACEUTICALS INTERNATIONAL
Approved: Approved Prior to Jan 1, 1982 | RLD: Yes | RS: No | Type: DISCN